FAERS Safety Report 8543199-8 (Version None)
Quarter: 2012Q3

REPORT INFORMATION
  Report Type: 
  Country: None (occurrence: None)
  Receive Date: 20120727
  Receipt Date: 20120716
  Transmission Date: 20120928
  Serious: Yes (Death, Other)
  Sender: FDA-Public Use
  Company Number: CN-MPIJNJ-2012-05068

PATIENT

DRUGS (1)
  1. VELCADE [Suspect]
     Indication: PRODUCT USED FOR UNKNOWN INDICATION
     Dosage: UNK
     Route: 065
     Dates: start: 20070101

REACTIONS (1)
  - HEPATIC NECROSIS [None]
